FAERS Safety Report 18214543 (Version 1)
Quarter: 2020Q3

REPORT INFORMATION
  Report Type: Spontaneous
  Country: DE (occurrence: DE)
  Receive Date: 20200831
  Receipt Date: 20200831
  Transmission Date: 20201103
  Serious: Yes (Hospitalization)
  Sender: FDA-Public Use
  Company Number: NVSC2020DE235198

PATIENT
  Age: 36 Year
  Sex: Female
  Weight: 105 kg

DRUGS (8)
  1. PANTOPRAZOL [Concomitant]
     Active Substance: PANTOPRAZOLE SODIUM
     Indication: POLYARTHRITIS
     Dosage: 40 MG
     Route: 048
     Dates: start: 2007
  2. LODOTRA [Suspect]
     Active Substance: PREDNISONE
     Indication: POLYARTHRITIS
     Dosage: 5 MG, QD
     Route: 048
     Dates: start: 20141029
  3. FOLSAEURE [Concomitant]
     Active Substance: FOLIC ACID
     Indication: POLYARTHRITIS
     Dosage: 5 MG, QW
     Route: 048
     Dates: start: 20170721
  4. IBUPROFEN. [Suspect]
     Active Substance: IBUPROFEN
     Indication: POLYARTHRITIS
     Dosage: 1600 MG, QD
     Route: 048
     Dates: start: 2007
  5. XELJANZ [Suspect]
     Active Substance: TOFACITINIB CITRATE
     Indication: POLYARTHRITIS
     Dosage: 10 MG, QD DAILY DOSE: 10 MG MILLGRAM(S) EVERY DAYS 2 SEPARATED DOSES
     Route: 048
     Dates: start: 20170721
  6. METHOTREXAT [Concomitant]
     Active Substance: METHOTREXATE
     Indication: POLYARTHRITIS
     Dosage: 5 MG, QW
     Route: 048
     Dates: start: 20170721
  7. CARVEDILOL. [Concomitant]
     Active Substance: CARVEDILOL
     Indication: ESSENTIAL HYPERTENSION
     Dosage: 50 MG
     Route: 048
  8. DEKRISTOL [Concomitant]
     Active Substance: CHOLECALCIFEROL
     Indication: POLYARTHRITIS
     Dosage: 60000 IU, QMO
     Route: 048
     Dates: start: 2015

REACTIONS (2)
  - Diverticulitis [Not Recovered/Not Resolved]
  - Diverticular perforation [Not Recovered/Not Resolved]

NARRATIVE: CASE EVENT DATE: 20200419
